FAERS Safety Report 17219878 (Version 7)
Quarter: 2020Q3

REPORT INFORMATION
  Report Type: Spontaneous
  Country: US (occurrence: US)
  Receive Date: 20191231
  Receipt Date: 20200821
  Transmission Date: 20201102
  Serious: Yes (Other)
  Sender: FDA-Public Use
  Company Number: US-SA-2019SA360525

PATIENT

DRUGS (12)
  1. ALPROLIX [Suspect]
     Active Substance: EFTRENONACOG ALFA
     Dosage: 8600 IU
     Route: 042
  2. ALPROLIX [Suspect]
     Active Substance: EFTRENONACOG ALFA
     Dosage: 8329 IU
     Route: 042
  3. ALPROLIX [Suspect]
     Active Substance: EFTRENONACOG ALFA
     Dosage: 8300 U
     Route: 041
  4. ALPROLIX [Suspect]
     Active Substance: EFTRENONACOG ALFA
     Dosage: 8300 IU
     Route: 042
  5. ALPROLIX [Suspect]
     Active Substance: EFTRENONACOG ALFA
     Dosage: 8300 IU
     Route: 042
  6. ALPROLIX [Suspect]
     Active Substance: EFTRENONACOG ALFA
     Dosage: 8300 U, DAILY FOR 4 DAYS
     Route: 041
  7. ALPROLIX [Suspect]
     Active Substance: EFTRENONACOG ALFA
     Dosage: 8300 U, DAILY FOR 4 DAYS
     Route: 041
  8. ALPROLIX [Suspect]
     Active Substance: EFTRENONACOG ALFA
     Dosage: 8238 U
     Route: 041
  9. ALPROLIX [Suspect]
     Active Substance: EFTRENONACOG ALFA
     Dosage: 8600 IU
     Route: 042
  10. ALPROLIX [Suspect]
     Active Substance: EFTRENONACOG ALFA
     Dosage: 8329 IU
     Route: 042
  11. ALPROLIX [Suspect]
     Active Substance: EFTRENONACOG ALFA
     Dosage: 8300 U
     Route: 041
  12. ALPROLIX [Suspect]
     Active Substance: EFTRENONACOG ALFA
     Dosage: 8238 U
     Route: 041

REACTIONS (7)
  - Head injury [Recovered/Resolved]
  - Limb injury [Not Recovered/Not Resolved]
  - Muscle strain [Recovered/Resolved]
  - Arthralgia [Recovered/Resolved]
  - Traumatic haemorrhage [Not Recovered/Not Resolved]
  - Haemarthrosis [Unknown]
  - Traumatic haemorrhage [Recovered/Resolved]

NARRATIVE: CASE EVENT DATE: 20191215
